FAERS Safety Report 5852352-3 (Version None)
Quarter: 2008Q3

REPORT INFORMATION
  Report Type: 
  Country: None (occurrence: None)
  Receive Date: 20080820
  Receipt Date: 20080820
  Transmission Date: 20090109
  Serious: Yes (Disabling)
  Sender: FDA-Public Use
  Company Number: None

PATIENT
  Sex: Male
  Weight: 66.5 kg

DRUGS (2)
  1. BACTRIM [Suspect]
     Indication: BACTERIA URINE
     Dosage: 1 TAB TWICE DAILY PO
     Route: 048
     Dates: start: 20080720, end: 20080728
  2. BACTRIM [Suspect]
     Indication: ESCHERICHIA INFECTION
     Dosage: 1 TAB TWICE DAILY PO
     Route: 048
     Dates: start: 20080720, end: 20080728

REACTIONS (3)
  - ALANINE AMINOTRANSFERASE INCREASED [None]
  - ASPARTATE AMINOTRANSFERASE INCREASED [None]
  - LIVER FUNCTION TEST ABNORMAL [None]
